FAERS Safety Report 8384159-X (Version None)
Quarter: 2012Q2

REPORT INFORMATION
  Report Type: 
  Country: None (occurrence: None)
  Receive Date: 20120524
  Receipt Date: 20120515
  Transmission Date: 20120825
  Serious: Yes (Other)
  Sender: FDA-Public Use
  Company Number: FR-ROCHE-1069612

PATIENT
  Sex: Male

DRUGS (9)
  1. DEXAMETHASONE [Concomitant]
  2. THALIDOMIDE [Concomitant]
  3. MABTHERA [Suspect]
     Indication: CHRONIC GRAFT VERSUS HOST DISEASE
     Dosage: 100 MG AND 500 MG CONCENTRATE
     Route: 041
     Dates: start: 20111222, end: 20120112
  4. LENALIDOMIDE [Concomitant]
  5. CYCLOSPORINE [Suspect]
     Indication: CHRONIC GRAFT VERSUS HOST DISEASE
     Dates: start: 20111207
  6. FLUDARABINE PHOSPHATE [Concomitant]
  7. PREDNISONE [Suspect]
     Indication: CHRONIC GRAFT VERSUS HOST DISEASE
     Dates: start: 20111207, end: 20120104
  8. BORTEZOMIB [Concomitant]
  9. MELPHALAN HYDROCHLORIDE [Concomitant]

REACTIONS (1)
  - LYMPHOPENIA [None]
